FAERS Safety Report 20258598 (Version 1)
Quarter: 2021Q4

REPORT INFORMATION
  Report Type: Spontaneous
  Country: SE (occurrence: SE)
  Receive Date: 20211230
  Receipt Date: 20211230
  Transmission Date: 20220303
  Serious: Yes (Hospitalization)
  Sender: FDA-Public Use
  Company Number: None

PATIENT
  Age: 82 Year
  Sex: Male

DRUGS (3)
  1. COLCHICINE [Suspect]
     Active Substance: COLCHICINE
     Route: 065
     Dates: end: 202110
  2. ELIQUIS [Concomitant]
     Active Substance: APIXABAN
  3. ENALAPRIL [Concomitant]
     Active Substance: ENALAPRIL
     Dates: end: 202110

REACTIONS (3)
  - Renal failure [Recovering/Resolving]
  - Nausea [Recovering/Resolving]
  - Vomiting [Recovering/Resolving]

NARRATIVE: CASE EVENT DATE: 20211001
